FAERS Safety Report 6651799-5 (Version None)
Quarter: 2010Q1

REPORT INFORMATION
  Report Type: 
  Country: None (occurrence: None)
  Receive Date: 20100323
  Receipt Date: 20100317
  Transmission Date: 20100710
  Serious: Yes (Hospitalization)
  Sender: FDA-Public Use
  Company Number: SPV1-2010-00497

PATIENT
  Age: 51 Year
  Sex: Male

DRUGS (16)
  1. FOSRENOL [Suspect]
     Indication: HYPERPHOSPHATAEMIA
     Dosage: 750 MG
     Route: 002
     Dates: start: 20090727
  2. RENAGEL [Concomitant]
  3. ROCALTROL [Concomitant]
  4. CINACALCET HYDROCHLORIDE (CINACALCET HYDROCHLORIE) [Concomitant]
  5. BIOFERMIN (BACCILLUS SUBTILIS, LACTOSBACILLUS ACIDOPHILUS, STREPTOCOCC [Concomitant]
  6. DIOVAN [Concomitant]
  7. NORVASC [Concomitant]
  8. SENNOSIDE /00571901/ (SENNOSIDE A+B) [Concomitant]
  9. ADALAT CC [Concomitant]
  10. RIZABEN (TRANILAST) [Concomitant]
  11. ZESULAN (MESQUITAZINE) [Concomitant]
  12. KINEDAK (EPALRESTAT) [Concomitant]
  13. NESP (DARBEPOETIN ALFA) [Concomitant]
  14. FESIN (SACCHARATED IRON OXIDE) [Concomitant]
  15. NOVOLOG [Concomitant]
  16. CALTAN (CALCIUM CARBONATE) [Concomitant]

REACTIONS (2)
  - HAEMATEMESIS [None]
  - REFLUX OESOPHAGITIS [None]
